FAERS Safety Report 21077366 (Version 1)
Quarter: 2022Q3

REPORT INFORMATION
  Report Type: Spontaneous
  Country: CN (occurrence: None)
  Receive Date: 20220713
  Receipt Date: 20220713
  Transmission Date: 20221027
  Serious: Yes (Other)
  Sender: FDA-Public Use
  Company Number: 2022A219364

PATIENT
  Age: 64 Year
  Sex: Female

DRUGS (7)
  1. GEFITINIB [Suspect]
     Active Substance: GEFITINIB
     Indication: Lung adenocarcinoma
     Route: 048
  2. OSIMERTINIB [Suspect]
     Active Substance: OSIMERTINIB
     Indication: Lung adenocarcinoma
     Route: 048
     Dates: start: 202007
  3. PEMETREXED [Concomitant]
     Active Substance: PEMETREXED
     Dates: start: 201711, end: 201801
  4. PEMETREXED [Concomitant]
     Active Substance: PEMETREXED
     Dates: start: 20190917, end: 202003
  5. CATEQUENTINIB [Concomitant]
     Active Substance: CATEQUENTINIB
     Dosage: 10 MG, 1 TIME /D, FOR CONTINUOUS 2 WEEKS, FOLLOWED BY DISCONTINUATION FOR 1 WEEK FOR 4 CYCLES
     Route: 065
     Dates: start: 202003, end: 202007
  6. DOCETAXEL [Concomitant]
     Active Substance: DOCETAXEL
     Route: 065
     Dates: start: 20210120
  7. SINTILIMAB [Concomitant]
     Active Substance: SINTILIMAB
     Route: 065
     Dates: start: 20210120

REACTIONS (7)
  - Malignant transformation [Unknown]
  - Metastasis [Unknown]
  - Metastases to central nervous system [Unknown]
  - Gene mutation [Unknown]
  - Malignant neoplasm progression [Unknown]
  - Drug resistance [Unknown]
  - Drug ineffective [Unknown]
